FAERS Safety Report 5443690-7 (Version None)
Quarter: 2007Q3

REPORT INFORMATION
  Report Type: 
  Country: None (occurrence: None)
  Receive Date: 20070831
  Receipt Date: 20070817
  Transmission Date: 20080115
  Serious: Yes (Hospitalization)
  Sender: FDA-Public Use
  Company Number: 235633K07USA

PATIENT
  Age: 57 Year
  Sex: Female
  Weight: 60.782 kg

DRUGS (6)
  1. REBIF [Suspect]
     Indication: MULTIPLE SCLEROSIS
     Dosage: 22 MCG, 3 IN 1 WEEKS, SUBCUTANEOUS; 22 MCG, 3 IN 1 WEEKS, SUBCUTANEOUS
     Route: 058
     Dates: start: 20070424, end: 20070615
  2. REBIF [Suspect]
     Indication: MULTIPLE SCLEROSIS
     Dosage: 22 MCG, 3 IN 1 WEEKS, SUBCUTANEOUS; 22 MCG, 3 IN 1 WEEKS, SUBCUTANEOUS
     Route: 058
     Dates: start: 20070620
  3. TYLENOL (COTYLENOL) [Concomitant]
  4. DIOVAN [Concomitant]
  5. ZYRTEC [Concomitant]
  6. RANITIDINE (RANITIDINE /00550801/) [Concomitant]

REACTIONS (2)
  - CHEST PAIN [None]
  - CHOLELITHIASIS [None]
